FAERS Safety Report 4528858-6 (Version None)
Quarter: 2004Q4

REPORT INFORMATION
  Report Type: 
  Country: None (occurrence: None)
  Receive Date: 20041215
  Receipt Date: 20041215
  Transmission Date: 20050328
  Serious: Yes (Life-Threatening, Hospitalization, Disabling)
  Sender: FDA-Public Use
  Company Number: None

PATIENT
  Age: 42 Year
  Sex: Male
  Weight: 74.8435 kg

DRUGS (4)
  1. AMITRIPTYLINE HCL [Suspect]
     Indication: OFF LABEL USE
     Dosage: 1 TAB @ NIGHT ORALLY
     Route: 048
     Dates: start: 20020911, end: 20021004
  2. AMITRIPTYLINE HCL [Suspect]
     Indication: PROSTATITIS
     Dosage: 1 TAB @ NIGHT ORALLY
     Route: 048
     Dates: start: 20020911, end: 20021004
  3. LEVAQUIN [Concomitant]
  4. CELEBREX [Concomitant]

REACTIONS (27)
  - ALOPECIA [None]
  - ANGER [None]
  - ASTHENIA [None]
  - DISTURBANCE IN ATTENTION [None]
  - DYSURIA [None]
  - EATING DISORDER [None]
  - EMOTIONAL DISORDER [None]
  - FATIGUE [None]
  - FEELING ABNORMAL [None]
  - HALLUCINATION [None]
  - HEPATIC CYST [None]
  - HEPATIC LESION [None]
  - HEPATOMEGALY [None]
  - IMPRISONMENT [None]
  - INSOMNIA [None]
  - MALAISE [None]
  - MEMORY IMPAIRMENT [None]
  - MENTAL DISORDER [None]
  - NIGHTMARE [None]
  - OLIGURIA [None]
  - PAIN [None]
  - PARAESTHESIA [None]
  - PHYSICAL ASSAULT [None]
  - SUICIDAL IDEATION [None]
  - SUICIDE ATTEMPT [None]
  - THINKING ABNORMAL [None]
  - TREMOR [None]
